FAERS Safety Report 20818775 (Version 1)
Quarter: 2022Q2

REPORT INFORMATION
  Report Type: Spontaneous
  Country: US (occurrence: None)
  Receive Date: 20220511
  Receipt Date: 20220511
  Transmission Date: 20220721
  Serious: Yes (unspecified)
  Sender: FDA-Public Use
  Company Number: None

PATIENT
  Age: 60 Year
  Sex: Female
  Weight: 61.9 kg

DRUGS (1)
  1. GAZYVA [Suspect]
     Active Substance: OBINUTUZUMAB
     Indication: Follicular lymphoma
     Dosage: FREQUENCY : WEEKLY;?
     Dates: start: 20220510

REACTIONS (7)
  - Infusion related reaction [None]
  - Chest pain [None]
  - Dyspnoea [None]
  - Feeling hot [None]
  - Oxygen saturation decreased [None]
  - Chills [None]
  - Therapy interrupted [None]

NARRATIVE: CASE EVENT DATE: 20220511
